FAERS Safety Report 21743383 (Version 1)
Quarter: 2022Q4

REPORT INFORMATION
  Report Type: Report from Study
  Country: US (occurrence: US)
  Receive Date: 20221217
  Receipt Date: 20221217
  Transmission Date: 20230113
  Serious: No
  Sender: FDA-Public Use
  Company Number: US-ABBVIE-4201853

PATIENT
  Age: 49 Year
  Sex: Female

DRUGS (1)
  1. HUMIRA [Suspect]
     Active Substance: ADALIMUMAB
     Indication: Hidradenitis
     Dosage: CITRATE FREE
     Route: 058
     Dates: start: 20220930, end: 20221031

REACTIONS (4)
  - Dry skin [Unknown]
  - Hypoaesthesia [Unknown]
  - Skin swelling [Unknown]
  - Axillary pain [Unknown]

NARRATIVE: CASE EVENT DATE: 20221113
